FAERS Safety Report 9626373 (Version 1)
Quarter: 2013Q4

REPORT INFORMATION
  Report Type: Spontaneous
  Country: US (occurrence: US)
  Receive Date: 20131016
  Receipt Date: 20131016
  Transmission Date: 20140711
  Serious: No
  Sender: FDA-Public Use
  Company Number: US-BAYER-2013-124977

PATIENT
  Age: 60 Year
  Sex: Male
  Weight: 136.5 kg

DRUGS (7)
  1. ALEVE GELCAPS [Suspect]
     Route: 048
  2. INSULIN [Concomitant]
  3. OMEPRAZOLE [Concomitant]
  4. PLAVIX [Concomitant]
  5. ATENOLOL [Concomitant]
  6. LISINOPRIL [Concomitant]
  7. GLUCOVANCE [Concomitant]

REACTIONS (1)
  - Abdominal pain upper [Recovered/Resolved]
